FAERS Safety Report 24115710 (Version 2)
Quarter: 2024Q3

REPORT INFORMATION
  Report Type: Spontaneous
  Country: US (occurrence: US)
  Receive Date: 20240721
  Receipt Date: 20240721
  Transmission Date: 20241017
  Serious: No
  Sender: NOVO NORDISK
  Company Number: US-NOVOPROD-1192515

PATIENT
  Age: 61 Year
  Sex: Female

DRUGS (3)
  1. WEGOVY [Suspect]
     Active Substance: SEMAGLUTIDE
     Dosage: 1 MG, QW
     Route: 058
     Dates: start: 20240125
  2. WEGOVY [Suspect]
     Active Substance: SEMAGLUTIDE
     Indication: Weight control
     Dosage: UNK
     Route: 058
  3. WEGOVY [Suspect]
     Active Substance: SEMAGLUTIDE
     Indication: Weight control
     Dosage: 0.25 MG
     Route: 058

REACTIONS (11)
  - Illness [Unknown]
  - Blood glucose decreased [Recovering/Resolving]
  - Feeding disorder [Recovering/Resolving]
  - Hypoglycaemia [Recovering/Resolving]
  - Metabolic disorder [Not Recovered/Not Resolved]
  - Hunger [Not Recovered/Not Resolved]
  - Tri-iodothyronine decreased [Not Recovered/Not Resolved]
  - Weight increased [Recovered/Resolved]
  - Weight loss poor [Not Recovered/Not Resolved]
  - Off label use [Unknown]
  - Drug ineffective [Recovered/Resolved]

NARRATIVE: CASE EVENT DATE: 20231101
